FAERS Safety Report 7679499-3 (Version None)
Quarter: 2011Q3

REPORT INFORMATION
  Report Type: 
  Country: None (occurrence: None)
  Receive Date: 20110812
  Receipt Date: 20110812
  Transmission Date: 20111222
  Serious: Yes (Other)
  Sender: FDA-Public Use
  Company Number: None

PATIENT
  Age: 69 Year
  Sex: Female
  Weight: 77.11 kg

DRUGS (1)
  1. COZAAR [Suspect]
     Indication: DRUG THERAPY CHANGED
     Dosage: 1 TABLET
     Route: 048
     Dates: start: 20110729, end: 20110806

REACTIONS (5)
  - BLOOD PRESSURE INCREASED [None]
  - DRUG INTERACTION [None]
  - PALPITATIONS [None]
  - HEADACHE [None]
  - EXTRASYSTOLES [None]
